FAERS Safety Report 8184361-6 (Version None)
Quarter: 2012Q1

REPORT INFORMATION
  Report Type: 
  Country: None (occurrence: None)
  Receive Date: 20120305
  Receipt Date: 20120221
  Transmission Date: 20120608
  Serious: Yes (Other)
  Sender: FDA-Public Use
  Company Number: US-ELI_LILLY_AND_COMPANY-US200910007352

PATIENT
  Sex: Male

DRUGS (4)
  1. FLUOXETINE [Concomitant]
     Dosage: 20 MG, UNKNOWN
  2. RISPERDAL [Concomitant]
     Dosage: 3 MG, UNKNOWN
  3. ZYPREXA [Suspect]
     Dosage: 15 MG, QD
  4. ZYPREXA [Suspect]
     Dosage: 7.5 MG, UNKNOWN
     Dates: start: 20010921

REACTIONS (7)
  - ALANINE AMINOTRANSFERASE INCREASED [None]
  - DIABETES MELLITUS [None]
  - BLOOD TRIGLYCERIDES INCREASED [None]
  - RECTAL HAEMORRHAGE [None]
  - WEIGHT INCREASED [None]
  - ASPARTATE AMINOTRANSFERASE INCREASED [None]
  - GOUT [None]
